FAERS Safety Report 5993076-1 (Version None)
Quarter: 2008Q4

REPORT INFORMATION
  Report Type: 
  Country: None (occurrence: None)
  Receive Date: 20081210
  Receipt Date: 20081202
  Transmission Date: 20090506
  Serious: Yes (Hospitalization)
  Sender: FDA-Public Use
  Company Number: 2008SP024442

PATIENT
  Age: 45 Year
  Sex: Female
  Weight: 50.9 kg

DRUGS (12)
  1. TEMOZOLOMIDE [Suspect]
     Indication: MALIGNANT MELANOMA
     Dosage: 200 MG/M2; PO
     Route: 048
     Dates: start: 20081121, end: 20081125
  2. BEVACIZUMAB [Suspect]
     Indication: MALIGNANT MELANOMA
     Dosage: 10 MG/KG; IV
     Route: 042
     Dates: start: 20081121, end: 20081121
  3. ALPRAZOLAM (CON.) [Concomitant]
  4. BENADRYL (CON.) [Concomitant]
  5. DEXAMETHASONE (CON.) [Concomitant]
  6. DOCUSATE SODIUM (CON.) [Concomitant]
  7. DULOXETINE (CON.) [Concomitant]
  8. ESOMEPRAZOLE MAGNESIUM (CON.) [Concomitant]
  9. FENTANYL (CON.) [Concomitant]
  10. LEVETIRACETAM (CON.) [Concomitant]
  11. ONDANSETRON (CON.) [Concomitant]
  12. PROCHLORPERAZINE (CON.) [Concomitant]

REACTIONS (3)
  - DEHYDRATION [None]
  - NAUSEA [None]
  - VOMITING [None]
